FAERS Safety Report 14380498 (Version 1)
Quarter: 2018Q1

REPORT INFORMATION
  Report Type: Spontaneous
  Country: US (occurrence: US)
  Receive Date: 20180112
  Receipt Date: 20180112
  Transmission Date: 20180509
  Serious: Yes (Hospitalization)
  Sender: FDA-Public Use
  Company Number: US-ASTRAZENECA-2018SE02382

PATIENT
  Sex: Female
  Weight: 102.1 kg

DRUGS (3)
  1. SYMBICORT [Suspect]
     Active Substance: BUDESONIDE\FORMOTEROL FUMARATE DIHYDRATE
     Indication: RALES
     Dosage: 160/4.5 MCG, TWO TIMES A DAY
     Route: 055
  2. SYMBICORT [Suspect]
     Active Substance: BUDESONIDE\FORMOTEROL FUMARATE DIHYDRATE
     Indication: EMPHYSEMA
     Dosage: 160/4.5 MCG, TWO TIMES A DAY
     Route: 055
  3. PROAIR HFA [Concomitant]
     Active Substance: ALBUTEROL SULFATE

REACTIONS (7)
  - Memory impairment [Not Recovered/Not Resolved]
  - Glossodynia [Not Recovered/Not Resolved]
  - Symptom recurrence [Recovered/Resolved with Sequelae]
  - Tongue disorder [Not Recovered/Not Resolved]
  - Macular degeneration [Not Recovered/Not Resolved]
  - Pneumonia aspiration [Unknown]
  - Tongue dry [Not Recovered/Not Resolved]
